FAERS Safety Report 11069172 (Version 1)
Quarter: 2015Q2

REPORT INFORMATION
  Report Type: Spontaneous
  Country: JP (occurrence: JP)
  Receive Date: 20150427
  Receipt Date: 20150427
  Transmission Date: 20150821
  Serious: Yes (Other)
  Sender: FDA-Public Use
  Company Number: JP-B.I. PHARMACEUTICALS,INC./RIDGEFIELD-2015-BI-22160NB

PATIENT
  Age: 61 Year
  Sex: Female

DRUGS (3)
  1. GILOTRIF [Suspect]
     Active Substance: AFATINIB
     Dosage: 40 MG
     Route: 048
     Dates: start: 20141101, end: 20141205
  2. GILOTRIF [Suspect]
     Active Substance: AFATINIB
     Indication: NON-SMALL CELL LUNG CANCER
     Dosage: 40 MG
     Route: 048
     Dates: start: 20140917, end: 201410
  3. GILOTRIF [Suspect]
     Active Substance: AFATINIB
     Dosage: 50 MG
     Route: 048
     Dates: start: 201410, end: 20141031

REACTIONS (2)
  - Malignant neoplasm progression [Unknown]
  - Paronychia [Unknown]

NARRATIVE: CASE EVENT DATE: 20141031
